FAERS Safety Report 9775551 (Version 2)
Quarter: 2014Q2

REPORT INFORMATION
  Report Type: Spontaneous
  Country: US (occurrence: US)
  Receive Date: 20131220
  Receipt Date: 20140618
  Transmission Date: 20141212
  Serious: No
  Sender: FDA-Public Use
  Company Number: US-GALDERMA-US13003705

PATIENT
  Age: 43 Year
  Sex: Male

DRUGS (2)
  1. MIRVASO (BRIMONIDINE) TOPICAL GEL, 0.33% [Suspect]
     Indication: ROSACEA
     Dosage: 0.33%
     Route: 061
     Dates: start: 20131007, end: 20131018
  2. FINACEA (AZELAIC ACID) GEL [Concomitant]
     Indication: ROSACEA
     Route: 061
     Dates: start: 201206

REACTIONS (1)
  - Urticaria [Recovered/Resolved]
